FAERS Safety Report 8289725-8 (Version None)
Quarter: 2012Q2

REPORT INFORMATION
  Report Type: 
  Country: None (occurrence: None)
  Receive Date: 20120417
  Receipt Date: 20120412
  Transmission Date: 20120825
  Serious: No
  Sender: FDA-Public Use
  Company Number: US-PFIZER INC-2012092112

PATIENT
  Sex: Female
  Weight: 79.365 kg

DRUGS (2)
  1. IBUPROFEN (ADVIL) [Suspect]
     Indication: BACK PAIN
     Dosage: 200 MG, 2X/DAY
     Route: 048
     Dates: start: 20120101, end: 20120101
  2. IBUPROFEN (ADVIL) [Suspect]
     Indication: INFLAMMATION
     Dosage: 400 MG, 2X/DAY
     Route: 048
     Dates: start: 20120101, end: 20120301

REACTIONS (5)
  - FEELING ABNORMAL [None]
  - HEADACHE [None]
  - NAUSEA [None]
  - DIZZINESS [None]
  - PALPITATIONS [None]
